FAERS Safety Report 5358367-6 (Version None)
Quarter: 2007Q2

REPORT INFORMATION
  Report Type: 
  Country: None (occurrence: None)
  Receive Date: 20070613
  Receipt Date: 20070613
  Transmission Date: 20071010
  Serious: Yes (Hospitalization)
  Sender: FDA-Public Use
  Company Number: None

PATIENT
  Sex: Female
  Weight: 83 kg

DRUGS (11)
  1. TEMOZOLOMIDE [Suspect]
     Dosage: 5800 MG
  2. ACTOS [Concomitant]
  3. DARVOCET [Concomitant]
  4. GEMFIBROZIL [Concomitant]
  5. GLIPIZIDE [Concomitant]
  6. HYZAAR [Concomitant]
  7. LIPITOR [Concomitant]
  8. METOPROLOL SUCCINATE [Concomitant]
  9. POTASSIUM REPLACEMENT [Concomitant]
  10. PRILOSEC [Concomitant]
  11. FOSAMAX [Concomitant]

REACTIONS (5)
  - ANAL FISSURE [None]
  - APLASTIC ANAEMIA [None]
  - GILBERT'S SYNDROME [None]
  - HYDRONEPHROSIS [None]
  - WEIGHT DECREASED [None]
